FAERS Safety Report 23234705 (Version 1)
Quarter: 2023Q4

REPORT INFORMATION
  Report Type: Report from Study
  Country: IN (occurrence: IN)
  Receive Date: 20231128
  Receipt Date: 20231128
  Transmission Date: 20240109
  Serious: Yes (Other)
  Sender: FDA-Public Use
  Company Number: IN-002147023-NVSC2023IN251743

PATIENT

DRUGS (1)
  1. RUXOLITINIB [Suspect]
     Active Substance: RUXOLITINIB
     Indication: Product used for unknown indication
     Dosage: 5 MG, BID
     Route: 048

REACTIONS (12)
  - Red blood cell sedimentation rate decreased [Recovered/Resolved with Sequelae]
  - Haemoglobin decreased [Recovered/Resolved with Sequelae]
  - Haemoglobin decreased [Recovered/Resolved with Sequelae]
  - Lymphocyte count decreased [Recovered/Resolved with Sequelae]
  - Haematocrit decreased [Recovered/Resolved with Sequelae]
  - Haematocrit decreased [Recovered/Resolved with Sequelae]
  - Red blood cell count decreased [Recovered/Resolved with Sequelae]
  - Eosinophil count decreased [Recovered/Resolved with Sequelae]
  - Monocyte count decreased [Recovered/Resolved with Sequelae]
  - Myelocyte count decreased [Recovered/Resolved with Sequelae]
  - Splenomegaly [Recovered/Resolved with Sequelae]
  - Thrombocytopenia [Recovered/Resolved with Sequelae]

NARRATIVE: CASE EVENT DATE: 20230112
